FAERS Safety Report 9652160 (Version 1)
Quarter: 2013Q4

REPORT INFORMATION
  Report Type: Spontaneous
  Country: DE (occurrence: None)
  Receive Date: 20131025
  Receipt Date: 20131025
  Transmission Date: 20140711
  Serious: Yes (Other)
  Sender: FDA-Public Use
  Company Number: 7243871

PATIENT
  Age: 69 Year
  Sex: Female

DRUGS (1)
  1. EUTHYROX [Suspect]
     Indication: AUTOIMMUNE THYROIDITIS
     Route: 048

REACTIONS (11)
  - Angina pectoris [None]
  - Feeling cold [None]
  - Gait disturbance [None]
  - Vertigo [None]
  - Hypoglycaemia [None]
  - Hypotonia [None]
  - Alopecia [None]
  - Dry skin [None]
  - Drug intolerance [None]
  - Blood pressure increased [None]
  - Tachycardia [None]
